FAERS Safety Report 14732784 (Version 1)
Quarter: 2018Q2

REPORT INFORMATION
  Report Type: Spontaneous
  Country: US (occurrence: US)
  Receive Date: 20180409
  Receipt Date: 20180409
  Transmission Date: 20180711
  Serious: Yes (Other)
  Sender: FDA-Public Use
  Company Number: US-PFIZER INC-2018105154

PATIENT
  Age: 15 Year
  Sex: Female

DRUGS (1)
  1. BESPONSA [Suspect]
     Active Substance: INOTUZUMAB OZOGAMICIN
     Indication: ACUTE LYMPHOCYTIC LEUKAEMIA
     Dosage: UNK, WEEKLY

REACTIONS (7)
  - Nausea [Unknown]
  - Decreased appetite [Unknown]
  - Contusion [Unknown]
  - Thrombocytopenia [Unknown]
  - Myalgia [Unknown]
  - Drug administered to patient of inappropriate age [Unknown]
  - Fatigue [Unknown]

NARRATIVE: CASE EVENT DATE: 20180331
